FAERS Safety Report 21935441 (Version 1)
Quarter: 2023Q1

REPORT INFORMATION
  Report Type: Spontaneous
  Country: US (occurrence: US)
  Receive Date: 20230201
  Receipt Date: 20230201
  Transmission Date: 20230417
  Serious: No
  Sender: FDA-Public Use
  Company Number: US-SA-SAC20230130000727

PATIENT
  Age: 47 Year
  Sex: Female
  Weight: 72 kg

DRUGS (11)
  1. DUPIXENT [Suspect]
     Active Substance: DUPILUMAB
     Indication: Asthma
     Dosage: 300 MG, 1X
     Route: 058
     Dates: start: 20230110, end: 20230110
  2. DUPIXENT [Suspect]
     Active Substance: DUPILUMAB
     Indication: Nasal polyps
     Dosage: 300 MG, QOW
     Route: 058
     Dates: start: 20230124
  3. ANASTROZOLE [Concomitant]
     Active Substance: ANASTROZOLE
  4. ESCITALOPRAM OXALATE [Concomitant]
     Active Substance: ESCITALOPRAM OXALATE
  5. HERCEPTIN [Concomitant]
     Active Substance: TRASTUZUMAB
  6. PERJETA [Concomitant]
     Active Substance: PERTUZUMAB
  7. TRELEGY ELLIPTA [Concomitant]
     Active Substance: FLUTICASONE FUROATE\UMECLIDINIUM BROMIDE\VILANTEROL TRIFENATATE
  8. ALBUTEROL SULFATE [Concomitant]
     Active Substance: ALBUTEROL SULFATE
  9. GABAPENTIN [Concomitant]
     Active Substance: GABAPENTIN
  10. SINGULAIR [Concomitant]
     Active Substance: MONTELUKAST SODIUM
  11. VITAMINS NOS [Concomitant]
     Active Substance: VITAMINS

REACTIONS (1)
  - Incorrect dose administered [Unknown]

NARRATIVE: CASE EVENT DATE: 20230110
